FAERS Safety Report 5243491-9 (Version None)
Quarter: 2007Q1

REPORT INFORMATION
  Report Type: 
  Country: None (occurrence: None)
  Receive Date: 20070222
  Receipt Date: 20070207
  Transmission Date: 20070707
  Serious: Yes (Hospitalization)
  Sender: FDA-Public Use
  Company Number: PHBS2007IN02448

PATIENT
  Age: 34 Year
  Sex: Female

DRUGS (2)
  1. BROMOCRIPTINE MESYLATE [Suspect]
     Indication: PITUITARY TUMOUR BENIGN
     Dosage: 2.5 MG/DAY
     Route: 048
  2. BROMOCRIPTINE MESYLATE [Suspect]
     Dosage: 7.5 MG/DAY
     Route: 048

REACTIONS (18)
  - ABDOMINAL DISTENSION [None]
  - ABDOMINAL PAIN [None]
  - ABDOMINAL RIGIDITY [None]
  - ABDOMINAL TENDERNESS [None]
  - BLOOD PRESSURE SYSTOLIC DECREASED [None]
  - DRUG EXPOSURE DURING PREGNANCY [None]
  - ECTOPIC PREGNANCY [None]
  - FALLOPIAN TUBE PERFORATION [None]
  - FOETAL HEART RATE ABNORMAL [None]
  - HEART RATE INCREASED [None]
  - HETEROTOPIC PREGNANCY [None]
  - LAPAROTOMY [None]
  - PERITONEAL HAEMORRHAGE [None]
  - SALPINGECTOMY [None]
  - SHOCK [None]
  - UTERINE CERVICAL PAIN [None]
  - UTERUS EVACUATION [None]
  - VOMITING [None]
